FAERS Safety Report 24312882 (Version 1)
Quarter: 2024Q3

REPORT INFORMATION
  Report Type: Spontaneous
  Country: US (occurrence: US)
  Receive Date: 20240912
  Receipt Date: 20240912
  Transmission Date: 20241017
  Serious: No
  Sender: PFIZER
  Company Number: US-PFIZER INC-202400251032

PATIENT
  Age: 71 Year
  Sex: Female

DRUGS (1)
  1. EUCRISA [Suspect]
     Active Substance: CRISABOROLE
     Dosage: DIRECTIONS FOR USE: FACE, HANDS, LEGS, ARMS, STOMACH

REACTIONS (3)
  - Rash [Unknown]
  - Rash macular [Unknown]
  - Rash pruritic [Unknown]
